FAERS Safety Report 11593692 (Version 2)
Quarter: 2015Q4

REPORT INFORMATION
  Report Type: Spontaneous
  Country: BY (occurrence: BY)
  Receive Date: 20151005
  Receipt Date: 20151209
  Transmission Date: 20160304
  Serious: Yes (Death, Other)
  Sender: FDA-Public Use
  Company Number: BY-GLAXOSMITHKLINE-BY2015GSK140416

PATIENT
  Age: 2 Year
  Sex: Female

DRUGS (2)
  1. ORASEPT [Concomitant]
     Indication: RESPIRATORY TRACT INFECTION VIRAL
     Dosage: UNK
     Dates: start: 20150822
  2. ZINNAT [Suspect]
     Active Substance: CEFUROXIME AXETIL
     Indication: PHARYNGITIS STREPTOCOCCAL
     Dosage: 250 MG, BID
     Route: 048
     Dates: start: 20150823, end: 20150823

REACTIONS (3)
  - Cyanosis [Unknown]
  - Asphyxia [Fatal]
  - Loss of consciousness [Unknown]

NARRATIVE: CASE EVENT DATE: 20150823
